FAERS Safety Report 9933558 (Version 2)
Quarter: 2014Q1

REPORT INFORMATION
  Report Type: Report from Study
  Country: US (occurrence: US)
  Receive Date: 20140228
  Receipt Date: 20140228
  Transmission Date: 20141002
  Serious: No
  Sender: FDA-Public Use
  Company Number: US-MYLANLABS-2013S1024180

PATIENT
  Age: 22 Year
  Sex: Female
  Weight: 63 kg

DRUGS (4)
  1. CLARAVIS [Suspect]
     Indication: ACNE
  2. AMNESTEEM CAPSULES [Suspect]
     Indication: ACNE
  3. AMNESTEEM CAPSULES [Suspect]
     Indication: ACNE
     Route: 048
  4. CLARAVIS [Suspect]
     Indication: ACNE

REACTIONS (2)
  - Drug hypersensitivity [Recovered/Resolved]
  - Dermatitis [Recovered/Resolved]
